FAERS Safety Report 8062718 (Version 2)
Quarter: 2014Q1

REPORT INFORMATION
  Report Type: Spontaneous
  Country: US (occurrence: US)
  Receive Date: 20110801
  Receipt Date: 20140212
  Transmission Date: 20141002
  Serious: Yes (Other)
  Sender: FDA-Public Use
  Company Number: US-ROCHE-760337

PATIENT
  Age: 41 Year
  Sex: Male
  Weight: 56.7 kg

DRUGS (3)
  1. ACCUTANE [Suspect]
     Indication: ACNE CYSTIC
     Dosage: FREQUENCY: QD
     Route: 048
     Dates: start: 199501, end: 199512
  2. ACCUTANE [Suspect]
     Route: 048
     Dates: start: 2000, end: 2000
  3. PREDNISONE [Concomitant]
     Route: 065

REACTIONS (9)
  - Crohn^s disease [Unknown]
  - Gastrointestinal injury [Unknown]
  - Inflammatory bowel disease [Unknown]
  - Intestinal obstruction [Unknown]
  - Head deformity [Unknown]
  - Emotional distress [Unknown]
  - Irritable bowel syndrome [Unknown]
  - Cyst [Unknown]
  - Acne [Unknown]
